FAERS Safety Report 23749181 (Version 1)
Quarter: 2024Q2

REPORT INFORMATION
  Report Type: Spontaneous
  Country: US (occurrence: None)
  Receive Date: 20240416
  Receipt Date: 20240416
  Transmission Date: 20240716
  Serious: Yes (Death)
  Sender: FDA-Public Use
  Company Number: None

PATIENT
  Age: 67 Year
  Sex: Female

DRUGS (6)
  1. NUPLAZID [Suspect]
     Active Substance: PIMAVANSERIN TARTRATE
     Indication: Hallucination, visual
     Dosage: 34 MG DAILY ORAL
     Route: 048
     Dates: start: 20220810, end: 20240415
  2. AMANTADINE [Concomitant]
     Active Substance: AMANTADINE
  3. LEXAPRO [Concomitant]
     Active Substance: ESCITALOPRAM OXALATE
  4. RIVASTIGMINE [Concomitant]
     Active Substance: RIVASTIGMINE
  5. SIMVASTATIN [Concomitant]
     Active Substance: SIMVASTATIN
  6. FENOFIBRATE [Concomitant]
     Active Substance: FENOFIBRATE

REACTIONS (1)
  - Death [None]

NARRATIVE: CASE EVENT DATE: 20240415
